FAERS Safety Report 21348474 (Version 2)
Quarter: 2022Q3

REPORT INFORMATION
  Report Type: Spontaneous
  Country: US (occurrence: US)
  Receive Date: 20220919
  Receipt Date: 20220925
  Transmission Date: 20221026
  Serious: Yes (Hospitalization, Other)
  Sender: FDA-Public Use
  Company Number: US-BRISTOL-MYERS SQUIBB COMPANY-2022-106379

PATIENT
  Age: 67 Year
  Sex: Female
  Weight: 87.09 kg

DRUGS (1)
  1. REVLIMID [Suspect]
     Active Substance: LENALIDOMIDE
     Indication: Plasma cell myeloma
     Dosage: 3W, 1W OFF
     Route: 048

REACTIONS (6)
  - Pyrexia [Unknown]
  - Vomiting [Unknown]
  - Dyspnoea [Unknown]
  - Vision blurred [Unknown]
  - Blood pressure fluctuation [Unknown]
  - Gait disturbance [Unknown]
